FAERS Safety Report 23075828 (Version 1)
Quarter: 2023Q4

REPORT INFORMATION
  Report Type: Spontaneous
  Country: US (occurrence: None)
  Receive Date: 20231017
  Receipt Date: 20231017
  Transmission Date: 20240110
  Serious: Yes (Hospitalization)
  Sender: FDA-Public Use
  Company Number: None

PATIENT
  Sex: Female

DRUGS (3)
  1. TADALAFIL [Suspect]
     Active Substance: TADALAFIL
     Indication: Pulmonary arterial hypertension
     Dosage: FREQUENCY : TWICE A DAY;?
     Route: 048
     Dates: start: 202104
  2. AMBRISENTAN [Concomitant]
  3. REMODULIN VIDV [Concomitant]

REACTIONS (4)
  - Cough [None]
  - Hypopnoea [None]
  - Dyspnoea [None]
  - Sleep disorder [None]
